FAERS Safety Report 9321220 (Version 2)
Quarter: 2013Q2

REPORT INFORMATION
  Report Type: Spontaneous
  Country: US (occurrence: None)
  Receive Date: 20130528
  Receipt Date: 20130528
  Transmission Date: 20140414
  Serious: Yes (Other)
  Sender: FDA-Public Use
  Company Number: 2012AP001989

PATIENT
  Age: 85 Year
  Sex: Male
  Weight: 74 kg

DRUGS (4)
  1. FERRIPROX [Suspect]
     Indication: IRON OVERLOAD
     Route: 048
     Dates: start: 20120505
  2. LANTUS [Concomitant]
  3. SODIUM BICARBONATE [Concomitant]
  4. GLIPIZIDE [Concomitant]

REACTIONS (4)
  - Hypoglycaemia [None]
  - Unresponsive to stimuli [None]
  - Decreased appetite [None]
  - Hypophagia [None]
